FAERS Safety Report 16361903 (Version 11)
Quarter: 2021Q2

REPORT INFORMATION
  Report Type: Report from Study
  Country: US (occurrence: US)
  Receive Date: 20190528
  Receipt Date: 20210601
  Transmission Date: 20210716
  Serious: Yes (Hospitalization, Other)
  Sender: FDA-Public Use
  Company Number: US-INCYTE CORPORATION-2019IN003802

PATIENT

DRUGS (12)
  1. JAKAFI [Suspect]
     Active Substance: RUXOLITINIB
     Dosage: 20 MG QD (MWF), BID (TUES, THURS, SAT, SUN)
     Route: 048
  2. JAKAFI [Suspect]
     Active Substance: RUXOLITINIB
     Dosage: 20MG QD (MWF) AND 20MG BID (SUTUTHSA)
     Route: 048
  3. TRAMADOL. [Concomitant]
     Active Substance: TRAMADOL
     Indication: PRODUCT USED FOR UNKNOWN INDICATION
     Dosage: AS NEEDED
     Route: 065
  4. JAKAFI [Suspect]
     Active Substance: RUXOLITINIB
     Indication: MYELOFIBROSIS
     Dosage: 20 MILLIGRAM, BID
     Route: 048
     Dates: start: 20190325
  5. JAKAFI [Suspect]
     Active Substance: RUXOLITINIB
     Dosage: 20 MILLIGRAM QD (MWF), 20 MILLIGRAM BID (TTHS AND SUN)
     Route: 048
     Dates: start: 20190325
  6. RETACRIT [Concomitant]
     Active Substance: EPOETIN ALFA-EPBX
     Indication: PRODUCT USED FOR UNKNOWN INDICATION
     Dosage: UNK, EVERY OTHER WEEK
     Route: 065
  7. JAKAFI [Suspect]
     Active Substance: RUXOLITINIB
     Dosage: 20 MILLIGRAM, BID (FOR 4 DAYS) AND QD FOR 3 DAYS A WEEK
     Route: 048
     Dates: start: 201911
  8. JAKAFI [Suspect]
     Active Substance: RUXOLITINIB
     Indication: POLYCYTHAEMIA VERA
     Dosage: 20 MILLIGRAM, BID
     Route: 048
     Dates: start: 20190412
  9. COVID?19 VACCINE NOS. [Suspect]
     Active Substance: COVID-19 VACCINE NOS
     Indication: PRODUCT USED FOR UNKNOWN INDICATION
     Route: 065
  10. HYDROXYUREA. [Concomitant]
     Active Substance: HYDROXYUREA
     Indication: PRODUCT USED FOR UNKNOWN INDICATION
     Route: 065
  11. IBUPROFEN. [Concomitant]
     Active Substance: IBUPROFEN
     Indication: PRODUCT USED FOR UNKNOWN INDICATION
     Dosage: 800 MILLIGRAM
     Route: 048
  12. JAKAFI [Suspect]
     Active Substance: RUXOLITINIB
     Dosage: 20 MILLIGRAM, BID (FOR 4 DAYS) AND QD FOR 3 DAYS A WEEK
     Route: 048
     Dates: start: 201912

REACTIONS (44)
  - Fatigue [Recovering/Resolving]
  - Hypersomnia [Unknown]
  - Madarosis [Unknown]
  - Aphonia [Recovered/Resolved]
  - Arthralgia [Unknown]
  - Cough [Recovering/Resolving]
  - Stress [Not Recovered/Not Resolved]
  - Tooth disorder [Not Recovered/Not Resolved]
  - Overweight [Unknown]
  - Lower respiratory tract infection [Unknown]
  - Flushing [Recovered/Resolved]
  - Tooth loss [Unknown]
  - Muscle spasms [Recovered/Resolved]
  - Urinary tract infection [Recovering/Resolving]
  - Emotional distress [Not Recovered/Not Resolved]
  - Toothache [Unknown]
  - Hypoacusis [Unknown]
  - Decreased activity [Recovering/Resolving]
  - Platelet count decreased [Unknown]
  - Weight increased [Not Recovered/Not Resolved]
  - Blood cholesterol increased [Not Recovered/Not Resolved]
  - Haemoglobin decreased [Unknown]
  - Dental caries [Not Recovered/Not Resolved]
  - Pulmonary thrombosis [Unknown]
  - Haemoptysis [Unknown]
  - Back pain [Unknown]
  - Oropharyngeal pain [Recovering/Resolving]
  - Depression [Unknown]
  - Crying [Unknown]
  - Platelet count increased [Unknown]
  - Pain in extremity [Recovering/Resolving]
  - Ageusia [Unknown]
  - Burning sensation [Unknown]
  - Nasopharyngitis [Recovering/Resolving]
  - Oropharyngeal discomfort [Recovering/Resolving]
  - Asthenia [Recovering/Resolving]
  - Impaired healing [Unknown]
  - Anxiety [Unknown]
  - Tearfulness [Unknown]
  - Epistaxis [Recovering/Resolving]
  - Headache [Recovered/Resolved]
  - Dyspnoea exertional [Not Recovered/Not Resolved]
  - Diarrhoea [Recovering/Resolving]
  - Product dose omission issue [Unknown]

NARRATIVE: CASE EVENT DATE: 20190410
